FAERS Safety Report 17852161 (Version 1)
Quarter: 2020Q2

REPORT INFORMATION
  Report Type: Spontaneous
  Country: CA (occurrence: CA)
  Receive Date: 20200602
  Receipt Date: 20200602
  Transmission Date: 20200714
  Serious: Yes (Other)
  Sender: FDA-Public Use
  Company Number: CA-ROCHE-2613065

PATIENT

DRUGS (11)
  1. PHENYTOIN. [Concomitant]
     Active Substance: PHENYTOIN
  2. CLONAZEPAM. [Suspect]
     Active Substance: CLONAZEPAM
     Indication: PRODUCT USED FOR UNKNOWN INDICATION
     Route: 048
  3. HALOPERIDOL. [Concomitant]
     Active Substance: HALOPERIDOL
  4. PHENOBARBITAL. [Concomitant]
     Active Substance: PHENOBARBITAL
  5. VALPROIC ACID. [Concomitant]
     Active Substance: VALPROIC ACID
  6. LORAZEPAM. [Suspect]
     Active Substance: LORAZEPAM
     Indication: PRODUCT USED FOR UNKNOWN INDICATION
     Route: 065
  7. LOXAPINE. [Concomitant]
     Active Substance: LOXAPINE
  8. DIAZEPAM. [Suspect]
     Active Substance: DIAZEPAM
     Indication: PRODUCT USED FOR UNKNOWN INDICATION
     Route: 065
  9. MIDAZOLAM. [Suspect]
     Active Substance: MIDAZOLAM
     Indication: PRODUCT USED FOR UNKNOWN INDICATION
     Route: 030
  10. CLONIDINE. [Concomitant]
     Active Substance: CLONIDINE
  11. QUETIAPINE. [Concomitant]
     Active Substance: QUETIAPINE

REACTIONS (3)
  - Fall [Unknown]
  - Respiratory depression [Unknown]
  - Sedation [Unknown]
